FAERS Safety Report 15960732 (Version 1)
Quarter: 2019Q1

REPORT INFORMATION
  Report Type: Other
  Country: CA (occurrence: CA)
  Receive Date: 20190214
  Receipt Date: 20190214
  Transmission Date: 20190417
  Serious: Yes (Life-Threatening, Hospitalization, Other)
  Sender: FDA-Public Use
  Company Number: CA-ASPEN-GLO2019CA001300

PATIENT
  Age: 41 Year
  Sex: Female
  Weight: 117 kg

DRUGS (2)
  1. DESOGESTREL, ETHINYLESTRADIOL [Suspect]
     Active Substance: DESOGESTREL
     Indication: CONTRACEPTION
  2. DESOGESTREL, ETHINYLESTRADIOL [Suspect]
     Active Substance: DESOGESTREL
     Indication: DYSMENORRHOEA
     Dosage: 1 DF, QD
     Route: 048

REACTIONS (1)
  - Pulmonary embolism [Unknown]
